FAERS Safety Report 8670095 (Version 6)
Quarter: 2013Q3

REPORT INFORMATION
  Report Type: Report from Study
  Country: US (occurrence: US)
  Receive Date: 20120718
  Receipt Date: 20130731
  Transmission Date: 20140515
  Serious: Yes (Hospitalization)
  Sender: FDA-Public Use
  Company Number: US-JNJFOC-20120704706

PATIENT
  Age: 15 Year
  Sex: Male
  Weight: 56.8 kg

DRUGS (3)
  1. REMICADE [Suspect]
     Indication: CROHN^S DISEASE
     Route: 042
     Dates: start: 20100522
  2. HUMIRA [Concomitant]
     Dates: start: 20101213
  3. BUDESONIDE [Concomitant]

REACTIONS (1)
  - Peritonitis [Recovered/Resolved]
